FAERS Safety Report 19771205 (Version 1)
Quarter: 2021Q3

REPORT INFORMATION
  Report Type: Spontaneous
  Country: US (occurrence: US)
  Receive Date: 20210830
  Receipt Date: 20210830
  Transmission Date: 20211014
  Serious: No
  Sender: FDA-Public Use
  Company Number: None

PATIENT
  Age: 82 Year
  Sex: Male
  Weight: 73 kg

DRUGS (2)
  1. WELLBUTRIN [Suspect]
     Active Substance: BUPROPION HYDROCHLORIDE
     Indication: FATIGUE
     Route: 048
     Dates: end: 20201211
  2. CARBIDOPA/LEVODOPA [Suspect]
     Active Substance: CARBIDOPA\LEVODOPA
     Indication: PARKINSON^S DISEASE
     Route: 048
     Dates: start: 20190214, end: 20201211

REACTIONS (10)
  - Dysphonia [None]
  - Disease progression [None]
  - Bradykinesia [None]
  - Hallucination [None]
  - Confusional state [None]
  - Dementia [None]
  - Homicidal ideation [None]
  - Delusion [None]
  - Cognitive disorder [None]
  - Cogwheel rigidity [None]

NARRATIVE: CASE EVENT DATE: 20201211
